FAERS Safety Report 11096789 (Version 1)
Quarter: 2015Q2

REPORT INFORMATION
  Report Type: Spontaneous
  Country: US (occurrence: None)
  Receive Date: 20150505
  Receipt Date: 20150505
  Transmission Date: 20150821
  Serious: Yes (Other)
  Sender: FDA-Public Use
  Company Number: 2015AKN00224

PATIENT
  Age: 16 Year
  Sex: Female
  Weight: 91.2 kg

DRUGS (4)
  1. MYORISAN [Suspect]
     Active Substance: ISOTRETINOIN
     Indication: ACNE
     Dosage: 1X/DAY
     Dates: end: 20150214
  2. MYORISAN [Suspect]
     Active Substance: ISOTRETINOIN
     Indication: ACNE
     Dosage: 1X/DAY
     Dates: end: 20150214
  3. IMITREX [Concomitant]
     Active Substance: SUMATRIPTAN\SUMATRIPTAN SUCCINATE
  4. UNSPECIFIED ORAL CONTRACEPTIVE [Concomitant]

REACTIONS (8)
  - Tremor [None]
  - Ubiquinone decreased [None]
  - Dehydration [None]
  - Loss of consciousness [None]
  - Vitamin D decreased [None]
  - Syncope [None]
  - Dizziness [None]
  - Blood iron decreased [None]

NARRATIVE: CASE EVENT DATE: 20150214
